FAERS Safety Report 11245123 (Version 1)
Quarter: 2015Q3

REPORT INFORMATION
  Report Type: Report from Study
  Country: US (occurrence: US)
  Receive Date: 20150707
  Receipt Date: 20150707
  Transmission Date: 20151125
  Serious: Yes (Hospitalization, Other)
  Sender: FDA-Public Use
  Company Number: US-GLAXOSMITHKLINE-US2014GSK054511

PATIENT
  Sex: Male

DRUGS (1)
  1. SALBUTAMOL SULPHATE [Suspect]
     Active Substance: ALBUTEROL SULFATE
     Indication: ASTHMA
     Dosage: UNK, U
     Route: 065

REACTIONS (18)
  - Vertigo [Unknown]
  - Blood cholesterol abnormal [Unknown]
  - Pneumonia [Unknown]
  - Chest discomfort [Recovering/Resolving]
  - Ill-defined disorder [Unknown]
  - Nausea [Unknown]
  - Myalgia [Unknown]
  - Lower respiratory tract infection viral [Unknown]
  - Inner ear disorder [Unknown]
  - Dyspnoea [Unknown]
  - Bronchitis [Unknown]
  - Nervousness [Unknown]
  - Aspiration [Unknown]
  - Multiple chemical sensitivity [Unknown]
  - Muscular weakness [Unknown]
  - Cardiac disorder [Unknown]
  - Blood glucose increased [Unknown]
  - Gastrooesophageal reflux disease [Unknown]

NARRATIVE: CASE EVENT DATE: 2014
